FAERS Safety Report 23994936 (Version 2)
Quarter: 2024Q4

REPORT INFORMATION
  Report Type: Spontaneous
  Country: GB (occurrence: GB)
  Receive Date: 20240620
  Receipt Date: 20241120
  Transmission Date: 20250115
  Serious: Yes (Congenital Anomaly, Other)
  Sender: CIPLA
  Company Number: GB-MLMSERVICE-20240517-PI059713-00270-2

PATIENT

DRUGS (11)
  1. VALGANCICLOVIR [Suspect]
     Active Substance: VALGANCICLOVIR
     Dosage: UNK
     Route: 064
  2. PREDNISOLONE [Suspect]
     Active Substance: PREDNISOLONE
     Dosage: UNK
     Route: 064
  3. PREDNISOLONE [Suspect]
     Active Substance: PREDNISOLONE
     Dosage: (WEANING)
     Route: 064
  4. METHYLPREDNISOLONE [Suspect]
     Active Substance: METHYLPREDNISOLONE
     Dosage: UNK
     Route: 064
  5. TRUXIMA [Suspect]
     Active Substance: RITUXIMAB-ABBS
     Dosage: UNK
     Route: 064
  6. CYCLOPHOSPHAMIDE [Suspect]
     Active Substance: CYCLOPHOSPHAMIDE
     Dosage: UNK
     Route: 064
  7. IRON [Suspect]
     Active Substance: IRON
     Dosage: UNK
     Route: 064
  8. TAZOBACTAM [Suspect]
     Active Substance: TAZOBACTAM
     Dosage: UNK
     Route: 064
  9. CEFUROXIME [Suspect]
     Active Substance: CEFUROXIME
     Dosage: UNK MATERNAL DOSE: 1.5 G
     Route: 064
  10. CEFUROXIME [Suspect]
     Active Substance: CEFUROXIME
     Dosage: UNK  (2 REGIMENS)
     Route: 064
  11. ACYCLOVIR [Suspect]
     Active Substance: ACYCLOVIR
     Dosage: UNK
     Route: 064

REACTIONS (6)
  - Premature baby [Unknown]
  - Deafness congenital [Unknown]
  - Congenital cytomegalovirus infection [Unknown]
  - Foetal growth restriction [Unknown]
  - Low birth weight baby [Unknown]
  - Foetal exposure during pregnancy [Unknown]
